FAERS Safety Report 9678799 (Version 2)
Quarter: 2013Q4

REPORT INFORMATION
  Report Type: Spontaneous
  Country: US (occurrence: US)
  Receive Date: 20131108
  Receipt Date: 20131204
  Transmission Date: 20140711
  Serious: Yes (Other)
  Sender: FDA-Public Use
  Company Number: US-GLAXOSMITHKLINE-A1048447A

PATIENT
  Age: 56 Year
  Sex: Male

DRUGS (7)
  1. HYCAMTIN [Suspect]
     Indication: PRODUCT USED FOR UNKNOWN INDICATION
     Dosage: 6MG SEE DOSAGE TEXT
     Route: 048
     Dates: start: 20131015
  2. HYDROCODONE [Concomitant]
  3. DIAZEPAM [Concomitant]
  4. IBUPROFEN [Concomitant]
  5. COMPAZINE [Concomitant]
  6. MAGNESIUM [Concomitant]
  7. DEXAMETHASONE [Concomitant]

REACTIONS (2)
  - Haematochezia [Recovering/Resolving]
  - Vomiting [Recovering/Resolving]
